FAERS Safety Report 16739850 (Version 1)
Quarter: 2019Q3

REPORT INFORMATION
  Report Type: Spontaneous
  Country: US (occurrence: US)
  Receive Date: 20190826
  Receipt Date: 20190826
  Transmission Date: 20191005
  Serious: Yes (Hospitalization)
  Sender: FDA-Public Use
  Company Number: US-STRIDES ARCOLAB LIMITED-2019SP004953

PATIENT
  Age: 11 Year
  Sex: Female

DRUGS (1)
  1. TRIAMCINOLONE ACETONIDE. [Suspect]
     Active Substance: TRIAMCINOLONE ACETONIDE
     Indication: DERMATITIS ATOPIC
     Dosage: UNK
     Route: 061

REACTIONS (10)
  - Pain of skin [Unknown]
  - Leukocytosis [Unknown]
  - Neutrophilia [Unknown]
  - Tachycardia [Unknown]
  - Hyperkeratosis [Unknown]
  - Exfoliative rash [Recovered/Resolved]
  - Bacterial infection [Unknown]
  - Pyrexia [Unknown]
  - Acarodermatitis [Unknown]
  - Erythema [Unknown]
